FAERS Safety Report 4813430-0 (Version None)
Quarter: 2005Q4

REPORT INFORMATION
  Report Type: 
  Country: None (occurrence: None)
  Receive Date: 20051028
  Receipt Date: 20050209
  Transmission Date: 20060501
  Serious: No
  Sender: FDA-Public Use
  Company Number: US-GLAXOSMITHKLINE-A0544799A

PATIENT
  Age: 58 Year
  Sex: Female
  Weight: 88.2 kg

DRUGS (3)
  1. ADVAIR DISKUS 100/50 [Suspect]
     Indication: ASTHMA
     Dosage: 1PUFF TWICE PER DAY
     Route: 055
  2. NO CONCURRENT MEDICATION [Concomitant]
  3. SINGULAIR [Concomitant]
     Indication: ASTHMA
     Dosage: 10MG UNKNOWN
     Route: 048
     Dates: start: 20041229, end: 20050209

REACTIONS (2)
  - OEDEMA PERIPHERAL [None]
  - SWELLING FACE [None]
